FAERS Safety Report 6465567-0 (Version None)
Quarter: 2009Q4

REPORT INFORMATION
  Report Type: 
  Country: None (occurrence: None)
  Receive Date: 20091201
  Receipt Date: 20091116
  Transmission Date: 20100525
  Serious: Yes (Hospitalization)
  Sender: FDA-Public Use
  Company Number: JP-PFIZER INC-2009298051

PATIENT
  Age: 52 Year
  Sex: Female

DRUGS (6)
  1. CELECOX [Suspect]
     Indication: BACK PAIN
     Dosage: 100 MG, 2X/DAY
     Route: 048
     Dates: start: 20091012, end: 20091023
  2. INFLUENZA VACCINE [Concomitant]
     Dosage: UNK
  3. ANASTROZOLE [Concomitant]
     Dosage: UNK
     Route: 048
  4. LIPIDIL [Concomitant]
     Dosage: UNK
     Route: 048
  5. TAKEPRON [Concomitant]
     Dosage: UNK
  6. ISALON [Concomitant]
     Dosage: UNK
     Route: 048

REACTIONS (1)
  - DRUG ERUPTION [None]
